FAERS Safety Report 11630391 (Version 11)
Quarter: 2018Q3

REPORT INFORMATION
  Report Type: Report from Study
  Country: JP (occurrence: JP)
  Receive Date: 20151014
  Receipt Date: 20180928
  Transmission Date: 20181010
  Serious: Yes (Hospitalization, Other)
  Sender: FDA-Public Use
  Company Number: JP-INCYTE CORPORATION-2015IN000150

PATIENT

DRUGS (20)
  1. RED BLOOD CELLS [Concomitant]
     Active Substance: HUMAN RED BLOOD CELL
     Dosage: 2 IU, QD
     Route: 065
     Dates: start: 20141031, end: 20141031
  2. RED BLOOD CELLS [Concomitant]
     Active Substance: HUMAN RED BLOOD CELL
     Dosage: 2 IU, QD
     Route: 065
     Dates: start: 20150428, end: 20150428
  3. RED BLOOD CELLS [Concomitant]
     Active Substance: HUMAN RED BLOOD CELL
     Dosage: 2 IU, UNK
     Route: 065
     Dates: start: 20161214, end: 20171201
  4. RED BLOOD CELLS [Concomitant]
     Active Substance: HUMAN RED BLOOD CELL
     Dosage: 2 IU, UNK
     Route: 065
     Dates: start: 20171202
  5. JAKAVI [Suspect]
     Active Substance: RUXOLITINIB
     Indication: MYELOFIBROSIS
     Dosage: 10 MG, QD
     Route: 048
     Dates: start: 20141201, end: 20150105
  6. JAKAVI [Suspect]
     Active Substance: RUXOLITINIB
     Dosage: 5 MG, BID
     Route: 048
     Dates: start: 20151201, end: 20160127
  7. JAKAVI [Suspect]
     Active Substance: RUXOLITINIB
     Dosage: 5 MG, QD
     Route: 048
     Dates: start: 20160330, end: 20160405
  8. JAKAVI [Suspect]
     Active Substance: RUXOLITINIB
     Dosage: 5 MG, BID
     Dates: start: 20140329, end: 20170928
  9. JAKAVI [Suspect]
     Active Substance: RUXOLITINIB
     Dosage: 5 MG, BID
     Route: 048
     Dates: start: 20160129, end: 20160329
  10. RED BLOOD CELLS [Concomitant]
     Active Substance: HUMAN RED BLOOD CELL
     Indication: MYELOFIBROSIS
     Dosage: 2 IU, QD
     Route: 065
     Dates: start: 20140905, end: 20140905
  11. JAKAVI [Suspect]
     Active Substance: RUXOLITINIB
     Dosage: 15 MG, BID, 5 MG IN MORNING, 10 MG AT NIGHT
     Route: 048
     Dates: start: 20170929
  12. RED BLOOD CELLS [Concomitant]
     Active Substance: HUMAN RED BLOOD CELL
     Dosage: 2 IU, QD
     Route: 065
     Dates: start: 20140912, end: 20140912
  13. JAKAVI [Suspect]
     Active Substance: RUXOLITINIB
     Dosage: 5 MG, BID
     Route: 048
     Dates: start: 20160405, end: 20170314
  14. JAKAVI [Suspect]
     Active Substance: RUXOLITINIB
     Dosage: 5 MG, QD
     Route: 048
     Dates: start: 20170315, end: 20170328
  15. RED BLOOD CELLS [Concomitant]
     Active Substance: HUMAN RED BLOOD CELL
     Dosage: 2 IU, QD
     Route: 065
     Dates: start: 20150127, end: 20150127
  16. RED BLOOD CELLS [Concomitant]
     Active Substance: HUMAN RED BLOOD CELL
     Dosage: 2 IU, QD
     Route: 065
     Dates: start: 20150414, end: 20150414
  17. RED BLOOD CELLS [Concomitant]
     Active Substance: HUMAN RED BLOOD CELL
     Dosage: 2 IU, UNK
     Route: 065
     Dates: start: 20150526, end: 20151201
  18. JAKAVI [Suspect]
     Active Substance: RUXOLITINIB
     Dosage: 5 MG, QD
     Route: 048
     Dates: start: 20150105, end: 20150119
  19. RED BLOOD CELLS [Concomitant]
     Active Substance: HUMAN RED BLOOD CELL
     Dosage: 2 IU, UNK
     Route: 065
     Dates: start: 20151208
  20. JAKAVI [Suspect]
     Active Substance: RUXOLITINIB
     Dosage: 5 MG, BID
     Route: 048
     Dates: start: 20150218, end: 20151117

REACTIONS (18)
  - Anaemia [Not Recovered/Not Resolved]
  - Myelofibrosis [Recovered/Resolved]
  - Volume blood increased [Unknown]
  - White blood cell count decreased [Not Recovered/Not Resolved]
  - Malaise [Recovering/Resolving]
  - Pyrexia [Recovering/Resolving]
  - Cystitis [Recovering/Resolving]
  - Blood alkaline phosphatase increased [Not Recovered/Not Resolved]
  - Herpes zoster [Recovered/Resolved]
  - Hypersplenism [Unknown]
  - Benign prostatic hyperplasia [Unknown]
  - Blood pressure systolic increased [Unknown]
  - Platelet count decreased [Recovering/Resolving]
  - Splenomegaly [Recovering/Resolving]
  - Ascites [Recovering/Resolving]
  - Haemoglobin decreased [Unknown]
  - Neutrophil count decreased [Not Recovered/Not Resolved]
  - Hepatic function abnormal [Recovering/Resolving]

NARRATIVE: CASE EVENT DATE: 20150105
